FAERS Safety Report 10405896 (Version 1)
Quarter: 2014Q3

REPORT INFORMATION
  Report Type: Spontaneous
  Country: US (occurrence: US)
  Receive Date: 20140825
  Receipt Date: 20140825
  Transmission Date: 20150326
  Serious: Yes (Hospitalization)
  Sender: FDA-Public Use
  Company Number: US-B.I. PHARMACEUTICALS,INC./RIDGEFIELD-2014-BI-38965BP

PATIENT
  Age: 67 Year
  Sex: Female

DRUGS (12)
  1. PROAIR HFA [Concomitant]
     Active Substance: ALBUTEROL SULFATE
     Indication: CHRONIC OBSTRUCTIVE PULMONARY DISEASE
     Dosage: FORMULATION: INHALAITON AEROSOL
     Route: 055
  2. ATROVENT [Suspect]
     Active Substance: IPRATROPIUM BROMIDE
     Dosage: 136 MCG
     Route: 055
     Dates: start: 201407
  3. LOSARTAN [Concomitant]
     Active Substance: LOSARTAN
     Indication: HYPERTENSION
     Dosage: 50 MG
     Route: 048
  4. CALCIUM SUPPLEMENT WITH D [Concomitant]
     Indication: OSTEOPOROSIS
     Dosage: 2 ANZ
     Route: 048
  5. NAPROXIN [Concomitant]
     Active Substance: NAPROXEN
     Indication: SPINAL OSTEOARTHRITIS
     Dosage: 2 ANZ
     Route: 048
  6. ATROVENT [Suspect]
     Active Substance: IPRATROPIUM BROMIDE
     Indication: CHRONIC OBSTRUCTIVE PULMONARY DISEASE
     Dosage: 102 MCG
     Route: 055
     Dates: start: 201307, end: 201407
  7. MORPHINE [Suspect]
     Active Substance: MORPHINE
     Indication: PRODUCT USED FOR UNKNOWN INDICATION
     Route: 065
  8. SIMVASTATIN. [Concomitant]
     Active Substance: SIMVASTATIN
     Indication: BLOOD CHOLESTEROL INCREASED
     Dosage: 20 MG
     Route: 048
  9. NAPROXIN [Concomitant]
     Active Substance: NAPROXEN
     Indication: SPINAL OSTEOARTHRITIS
  10. ICAPS EYE VITAMINS [Concomitant]
     Indication: GLAUCOMA
     Dosage: 1 ANZ
     Route: 048
  11. FOSAMAX [Concomitant]
     Active Substance: ALENDRONATE SODIUM
     Indication: OSTEOPOROSIS
     Dosage: 35 MG
     Route: 048
  12. SIMBRINZA [Concomitant]
     Active Substance: BRIMONIDINE TARTRATE\BRINZOLAMIDE
     Indication: GLAUCOMA
     Dosage: DOSE PER APPLICATION: 1GTT AND DAILY DOSE: 2GTT
     Route: 061

REACTIONS (2)
  - Smear cervix abnormal [Recovered/Resolved]
  - Oxygen saturation decreased [Recovered/Resolved]

NARRATIVE: CASE EVENT DATE: 201407
